FAERS Safety Report 5489928-1 (Version None)
Quarter: 2007Q4

REPORT INFORMATION
  Report Type: 
  Country: None (occurrence: None)
  Receive Date: 20071018
  Receipt Date: 20071010
  Transmission Date: 20080405
  Serious: Yes (Other)
  Sender: FDA-Public Use
  Company Number: CA-SHR-CA-2007-039166

PATIENT
  Age: 9 Year
  Sex: Female

DRUGS (1)
  1. BETASERON [Suspect]

REACTIONS (5)
  - BALANCE DISORDER [None]
  - DYSURIA [None]
  - MULTIPLE SCLEROSIS [None]
  - MYELITIS TRANSVERSE [None]
  - TREMOR [None]
